FAERS Safety Report 6704641-8 (Version None)
Quarter: 2010Q2

REPORT INFORMATION
  Report Type: 
  Country: None (occurrence: None)
  Receive Date: 20100430
  Receipt Date: 20100420
  Transmission Date: 20101027
  Serious: Yes (Life-Threatening, Hospitalization, Other)
  Sender: FDA-Public Use
  Company Number: US-TYCO HEALTHCARE/MALLINCKRODT-T201001107

PATIENT
  Age: 30 Year
  Sex: Male

DRUGS (2)
  1. METHADOSE [Suspect]
     Indication: DRUG DEPENDENCE
     Dosage: UNK
     Route: 048
  2. MARIJUANA [Suspect]
     Indication: DRUG USE FOR UNKNOWN INDICATION
     Dosage: UNK

REACTIONS (10)
  - AGITATION [None]
  - APNOEA [None]
  - DEAFNESS NEUROSENSORY [None]
  - DEPRESSED LEVEL OF CONSCIOUSNESS [None]
  - HEART RATE INCREASED [None]
  - OVERDOSE [None]
  - RESPIRATORY FAILURE [None]
  - RESPIRATORY RATE INCREASED [None]
  - SEPTIC SHOCK [None]
  - UNRESPONSIVE TO STIMULI [None]
